FAERS Safety Report 9299948 (Version 1)
Quarter: 2013Q1

REPORT INFORMATION
  Report Type: Spontaneous
  Country: US (occurrence: None)
  Receive Date: 20130107
  Receipt Date: 20130107
  Transmission Date: 20140127
  Serious: No
  Sender: FDA-Public Use
  Company Number: PHHY2012US102730

PATIENT
  Age: 60 Year
  Sex: Female
  Weight: 77.1 kg

DRUGS (13)
  1. FLEXERIL (CYCLOBENZAPRINE HYDROCHLORIDE) [Concomitant]
  2. NEURONTIN (GABAPENTIN) [Concomitant]
  3. DRISDOL (ERGOCALCIFEROL) [Concomitant]
  4. ADDERALL XR (AMFETAMINE ASPARATE, AMFETAMINE SULFATE, DEXAMFETAMINE SACCHARATE, DEXAMFETAMINE SULFATE) [Concomitant]
  5. REMERON (MIRTAZAPINE) [Concomitant]
  6. ROBAXIN (METHOCARBAMOL) [Concomitant]
  7. GILENYA [Suspect]
     Indication: MULTIPLE SCLEROSIS
     Route: 048
     Dates: start: 20120120
  8. CYMBALTA (DULOXETINE HYDROCHLORIDE) [Concomitant]
  9. VITAMIN B12 (CYANOCOBALAMIN) [Concomitant]
  10. VITAMIN E (TOCOPHEROL) [Concomitant]
  11. VITAMIN C [Concomitant]
  12. CLONAZEPAM (CLONAZEPAM) [Concomitant]
  13. XANAX (ALPRAZOLAM) [Concomitant]

REACTIONS (3)
  - Cognitive disorder [None]
  - Disturbance in attention [None]
  - Depressed level of consciousness [None]
